FAERS Safety Report 9012750 (Version 1)
Quarter: 2013Q1

REPORT INFORMATION
  Report Type: Spontaneous
  Country: US (occurrence: US)
  Receive Date: 20130114
  Receipt Date: 20130114
  Transmission Date: 20140127
  Serious: No
  Sender: FDA-Public Use
  Company Number: US-TEVA-380273USA

PATIENT
  Age: 79 Year
  Sex: Male
  Weight: 74.91 kg

DRUGS (3)
  1. PROAIR HFA [Suspect]
     Indication: BRONCHITIS
     Route: 055
     Dates: start: 20130105, end: 20130108
  2. TIKOSYN [Concomitant]
     Indication: ATRIAL FIBRILLATION
  3. ANTIBIOTIC [Concomitant]
     Indication: BRONCHITIS

REACTIONS (4)
  - Glossodynia [Not Recovered/Not Resolved]
  - Oropharyngeal pain [Not Recovered/Not Resolved]
  - Cheilitis [Not Recovered/Not Resolved]
  - Mouth ulceration [Unknown]
